FAERS Safety Report 4975802-3 (Version None)
Quarter: 2006Q2

REPORT INFORMATION
  Report Type: 
  Country: None (occurrence: None)
  Receive Date: 20060411
  Receipt Date: 20060329
  Transmission Date: 20061013
  Serious: Yes (Hospitalization)
  Sender: FDA-Public Use
  Company Number: 2006-03-2011

PATIENT
  Age: 81 Year
  Sex: Male

DRUGS (10)
  1. CLARITIN [Suspect]
     Dosage: 10 MG QD ORAL
     Route: 048
     Dates: end: 20060201
  2. PRAVASTATIN [Suspect]
     Dosage: 40 MG QD ORAL
     Route: 048
  3. FERRIC HYDROXIDE POLYMALTOSE [Concomitant]
  4. NEORECORMON (EPOETINE BETA) [Concomitant]
  5. CALCIUM CARBONATE ORAL SUSPENSION [Suspect]
     Dosage: 1.54 G QD ORAL
     Route: 048
  6. SPECIAFOLDINE TABLETS [Suspect]
     Dosage: 5 MG QD ORAL
     Route: 048
     Dates: end: 20060208
  7. A-ALPHA-HYDROXYCHOLECALCIFEROL [Concomitant]
  8. SERESTA [Concomitant]
  9. LASILIX TABLEST [Suspect]
     Dosage: 500MG BID ORAL
     Route: 048
  10. OMEPRAZOLE [Suspect]
     Dosage: 10 MG QD ORAL
     Route: 048
     Dates: end: 20060201

REACTIONS (1)
  - THROMBOCYTOPENIA [None]
